FAERS Safety Report 8597735-6 (Version None)
Quarter: 2012Q3

REPORT INFORMATION
  Report Type: 
  Country: None (occurrence: None)
  Receive Date: 20120816
  Receipt Date: 20120809
  Transmission Date: 20120928
  Serious: Yes (Other)
  Sender: FDA-Public Use
  Company Number: PHHY2012EC070220

PATIENT
  Age: 59 Year
  Sex: Female

DRUGS (2)
  1. ZOLEDRONOC ACID [Suspect]
     Indication: OSTEOPOROSIS
     Dosage: 5 MG/100 ML
     Route: 042
     Dates: start: 20090101
  2. CALCIUM [Concomitant]
     Indication: CALCULUS URINARY

REACTIONS (6)
  - RASH [None]
  - CYSTITIS HAEMORRHAGIC [None]
  - DRUG HYPERSENSITIVITY [None]
  - ABDOMINAL PAIN LOWER [None]
  - SWELLING [None]
  - HYPERSENSITIVITY [None]
